FAERS Safety Report 21920405 (Version 1)
Quarter: 2023Q1

REPORT INFORMATION
  Report Type: Spontaneous
  Country: US (occurrence: US)
  Receive Date: 20230127
  Receipt Date: 20230127
  Transmission Date: 20230418
  Serious: Yes (Hospitalization, Other)
  Sender: FDA-Public Use
  Company Number: US-REGENERON PHARMACEUTICALS, INC.-2023-020251

PATIENT
  Sex: Female

DRUGS (2)
  1. EYLEA [Suspect]
     Active Substance: AFLIBERCEPT
     Indication: Visual impairment
     Dosage: 2 MG, 4-6 WEEKS, RIGHT EYE (FORMULATION: UNKNOWN)
  2. EYLEA [Suspect]
     Active Substance: AFLIBERCEPT
     Dosage: 2 MG, 4-6 WEEKS, RIGHT EYE (FORMULATION: UNKNOWN)

REACTIONS (3)
  - Intestinal obstruction [Unknown]
  - Product dose omission issue [Unknown]
  - Off label use [Unknown]
